FAERS Safety Report 9171135 (Version 1)
Quarter: 2013Q1

REPORT INFORMATION
  Report Type: Spontaneous
  Country: US (occurrence: None)
  Receive Date: 20130311
  Receipt Date: 20130311
  Transmission Date: 20140127
  Serious: Yes (Other)
  Sender: FDA-Public Use
  Company Number: CIP-2013-00051

PATIENT
  Sex: Female

DRUGS (3)
  1. CARBOPLATIN [Suspect]
     Dosage: AUC 6 (DAY 1;REPEATED Q 21 DAYS;DOSE LEVEL IV),INTRAPERITONEAL
  2. PACLITAXEL [Suspect]
     Dosage: (60 MG/M2,DAY 8;REPEATED EVERY 21 DAYS), INTRAPERITONEAL
  3. DOCETAXEL [Suspect]
     Dosage: {75 MG/M2,DAY 1; DOSE LEVEL IV),INTRAVENOUS (NOT OTHERWISE SPECIFIED)

REACTIONS (1)
  - Dehydration [None]
